FAERS Safety Report 21594461 (Version 2)
Quarter: 2022Q4

REPORT INFORMATION
  Report Type: Spontaneous
  Country: CO (occurrence: None)
  Receive Date: 20221115
  Receipt Date: 20221216
  Transmission Date: 20230113
  Serious: Yes (Other)
  Sender: FDA-Public Use
  Company Number: CO-ROCHE-3217166

PATIENT
  Age: 52 Year
  Sex: Female
  Weight: 61 kg

DRUGS (5)
  1. PERTUZUMAB [Suspect]
     Active Substance: PERTUZUMAB
     Indication: Invasive ductal breast carcinoma
     Dosage: 6 CYCLES; DOSE AND FREQUENCY WERE NOT REPORTED
     Route: 065
  2. KADCYLA [Suspect]
     Active Substance: ADO-TRASTUZUMAB EMTANSINE
     Indication: Breast cancer
     Dosage: 6 CYCLES; DOSE AND FREQUENCY WERE NOT REPORTED
     Route: 042
     Dates: start: 20211231, end: 20221027
  3. KADCYLA [Suspect]
     Active Substance: ADO-TRASTUZUMAB EMTANSINE
     Indication: Invasive ductal breast carcinoma
  4. TRASTUZUMAB [Suspect]
     Active Substance: TRASTUZUMAB
     Indication: Invasive ductal breast carcinoma
     Dosage: 6 CYCLES; DOSE AND FREQUENCY WERE NOT REPORTED
     Route: 065
  5. ONDANSETRON [Concomitant]
     Active Substance: ONDANSETRON
     Indication: Prophylaxis of nausea and vomiting
     Route: 042
     Dates: start: 20211231, end: 20221027

REACTIONS (10)
  - Skin hyperpigmentation [Recovered/Resolved]
  - Vessel puncture site pain [Recovered/Resolved]
  - Vascular access site pain [Recovered/Resolved]
  - Hot flush [Unknown]
  - Hot flush [Unknown]
  - Adrenal neoplasm [Unknown]
  - Retroperitoneal lymphadenopathy [Unknown]
  - Nail injury [Unknown]
  - Spinal pain [Unknown]
  - Injection site extravasation [Recovered/Resolved]

NARRATIVE: CASE EVENT DATE: 20221027
